FAERS Safety Report 5002214-9 (Version None)
Quarter: 2006Q2

REPORT INFORMATION
  Report Type: 
  Country: None (occurrence: None)
  Receive Date: 20060510
  Receipt Date: 20060427
  Transmission Date: 20061013
  Serious: Yes (Other)
  Sender: FDA-Public Use
  Company Number: 2006057681

PATIENT
  Age: 53 Year
  Sex: Female
  Weight: 77.1115 kg

DRUGS (17)
  1. LYRICA [Suspect]
     Indication: NEURALGIA
     Dosage: 150 MG (75 MG, 2 IN 1 D), ORAL
     Route: 048
     Dates: start: 20060424
  2. THYROID TAB [Suspect]
     Indication: ILL-DEFINED DISORDER
  3. NORCO [Concomitant]
  4. ACTONEL [Concomitant]
  5. TRAZODONE HCL [Concomitant]
  6. LISINOPRIL [Concomitant]
  7. FEXOFENADINE HCL [Concomitant]
  8. NASONEX [Concomitant]
  9. HYDROCODONE BITARTRATE [Concomitant]
  10. PRAVACHOL [Concomitant]
  11. MAXALT [Concomitant]
  12. NEXIUM [Concomitant]
  13. AMBIEN [Concomitant]
  14. ALPRAZOLAM [Concomitant]
  15. NAPROXEN [Concomitant]
  16. MOBIC [Concomitant]
  17. TRIAMTERENE AND HYDROCHLOROTHIAZID  HARRIS (HYDROCHLORIDE, TRIAMTERENE [Concomitant]

REACTIONS (1)
  - ORAL MUCOSAL EXFOLIATION [None]
